FAERS Safety Report 6396558-6 (Version None)
Quarter: 2009Q4

REPORT INFORMATION
  Report Type: 
  Country: None (occurrence: None)
  Receive Date: 20091012
  Receipt Date: 20090930
  Transmission Date: 20100525
  Serious: Yes (Death)
  Sender: FDA-Public Use
  Company Number: AT-JNJFOC-20080405948

PATIENT
  Sex: Female

DRUGS (8)
  1. INFLIXIMAB [Suspect]
     Indication: SLE ARTHRITIS
     Route: 042
  2. INFLIXIMAB [Suspect]
     Indication: LUPUS NEPHRITIS
     Dosage: TOTAL OF 10 MONTHS TOTAL OF 8 INFUSIONS
     Route: 042
  3. INFLIXIMAB [Suspect]
     Indication: SYSTEMIC LUPUS ERYTHEMATOSUS
     Dosage: WEEK 0,2 AND 6, THEN EVERY 8 WEEKS FOR A TOTAL OF 10 MONTHS TOTAL OF 8 INFUSIONS
     Route: 042
  4. CYCLOPHOSPHAMIDE [Concomitant]
     Indication: PREMEDICATION
  5. STEROID PULSES [Concomitant]
     Indication: PREMEDICATION
  6. RITUXIMAB [Concomitant]
     Indication: PREMEDICATION
  7. MMF [Concomitant]
     Indication: PREMEDICATION
  8. METHYLPREDNISOLONE [Concomitant]

REACTIONS (3)
  - ARTHRITIS [None]
  - LUPUS NEPHRITIS [None]
  - PNEUMONIA LEGIONELLA [None]
